FAERS Safety Report 24091325 (Version 1)
Quarter: 2024Q3

REPORT INFORMATION
  Report Type: Spontaneous
  Country: US (occurrence: None)
  Receive Date: 20240714
  Receipt Date: 20240714
  Transmission Date: 20241017
  Serious: Yes (Hospitalization)
  Sender: Public
  Company Number: None

PATIENT
  Age: 51 Year
  Sex: Male
  Weight: 112.5 kg

DRUGS (1)
  1. DEFINITY RT [Suspect]
     Active Substance: PERFLUTREN
     Indication: Echocardiogram

REACTIONS (2)
  - Tachycardia [None]
  - Chest pain [None]

NARRATIVE: CASE EVENT DATE: 20240713
